FAERS Safety Report 6274962-4 (Version None)
Quarter: 2009Q3

REPORT INFORMATION
  Report Type: 
  Country: None (occurrence: None)
  Receive Date: 20090717
  Receipt Date: 20090709
  Transmission Date: 20100115
  Serious: Yes (Death)
  Sender: FDA-Public Use
  Company Number: GXKR2009GB07888

PATIENT
  Age: 17 Year
  Sex: Male

DRUGS (5)
  1. FLUCONAZOLE [Suspect]
     Indication: MENINGITIS CRYPTOCOCCAL
     Dosage: SEE IMAGE
     Route: 048
  2. FLUCONAZOLE [Suspect]
     Indication: MENINGITIS CRYPTOCOCCAL
     Dosage: SEE IMAGE
     Route: 048
  3. NEVIRAPINE [Suspect]
     Indication: HIV INFECTION
  4. LAMIVUDINE [Concomitant]
  5. STAVUDINE [Concomitant]

REACTIONS (5)
  - DISSEMINATED CRYPTOCOCCOSIS [None]
  - GRAND MAL CONVULSION [None]
  - MENINGITIS CRYPTOCOCCAL [None]
  - MUSCULAR WEAKNESS [None]
  - SKIN LESION [None]
